FAERS Safety Report 13355658 (Version 1)
Quarter: 2017Q1

REPORT INFORMATION
  Report Type: Spontaneous
  Country: US (occurrence: US)
  Receive Date: 20170321
  Receipt Date: 20170321
  Transmission Date: 20170429
  Serious: No
  Sender: FDA-Public Use
  Company Number: US-BAUSCH-BL-2016-018166

PATIENT
  Age: 57 Year
  Sex: Female

DRUGS (1)
  1. RENOVA [Suspect]
     Active Substance: TRETINOIN
     Indication: SKIN WRINKLING
     Route: 061
     Dates: start: 20160725, end: 20160726

REACTIONS (3)
  - Eye swelling [Not Recovered/Not Resolved]
  - Swelling face [Not Recovered/Not Resolved]
  - Pruritus [Not Recovered/Not Resolved]

NARRATIVE: CASE EVENT DATE: 20160726
